FAERS Safety Report 21246710 (Version 2)
Quarter: 2023Q1

REPORT INFORMATION
  Report Type: Report from Study
  Country: CA (occurrence: CA)
  Receive Date: 20220824
  Receipt Date: 20230220
  Transmission Date: 20230418
  Serious: Yes (Hospitalization)
  Sender: FDA-Public Use
  Company Number: CA-JNJFOC-20220847679

PATIENT
  Sex: Female
  Weight: 85 kg

DRUGS (1)
  1. REMICADE [Suspect]
     Active Substance: INFLIXIMAB
     Indication: Sarcoidosis
     Route: 042

REACTIONS (3)
  - Pneumonia [Recovered/Resolved]
  - Bacteraemia [Recovered/Resolved]
  - Urinary tract infection [Not Recovered/Not Resolved]
